FAERS Safety Report 5647712-X (Version None)
Quarter: 2008Q1

REPORT INFORMATION
  Report Type: 
  Country: None (occurrence: None)
  Receive Date: 20080303
  Receipt Date: 20080220
  Transmission Date: 20080703
  Serious: Yes (Other)
  Sender: FDA-Public Use
  Company Number: BE-PFIZER INC-2008006132

PATIENT
  Sex: Female
  Weight: 55 kg

DRUGS (5)
  1. CHANTIX [Suspect]
     Indication: SMOKING CESSATION THERAPY
     Route: 048
     Dates: start: 20061215, end: 20061230
  2. LIVIAL [Concomitant]
     Route: 048
  3. CYMBALTA [Concomitant]
     Route: 048
     Dates: start: 20050101
  4. BUPRENORPHINE HCL [Concomitant]
     Route: 048
     Dates: start: 20050101
  5. NICORETTE [Concomitant]
     Route: 062
     Dates: start: 20050101

REACTIONS (6)
  - ABDOMINAL PAIN [None]
  - DEPRESSION [None]
  - DIARRHOEA [None]
  - FATIGUE [None]
  - MEMORY IMPAIRMENT [None]
  - NERVOUS SYSTEM DISORDER [None]
